FAERS Safety Report 8119236-1 (Version None)
Quarter: 2011Q4

REPORT INFORMATION
  Report Type: 
  Country: None (occurrence: None)
  Receive Date: 20111227
  Receipt Date: 20111031
  Transmission Date: 20120403
  Serious: No
  Sender: FDA-Public Use
  Company Number: PHEH2011US05175

PATIENT
  Sex: Male

DRUGS (1)
  1. GILENYA [Suspect]
     Dosage: QD, ORAL
     Route: 048
     Dates: end: 20110617

REACTIONS (3)
  - DIPLOPIA [None]
  - DRY EYE [None]
  - VISION BLURRED [None]
